FAERS Safety Report 9542527 (Version 1)
Quarter: 2013Q3

REPORT INFORMATION
  Report Type: Spontaneous
  Country: US (occurrence: US)
  Receive Date: 20130923
  Receipt Date: 20130923
  Transmission Date: 20140515
  Serious: Yes (Other)
  Sender: FDA-Public Use
  Company Number: US-AMGEN-USASP2013066232

PATIENT
  Age: 51 Year
  Sex: Male

DRUGS (4)
  1. ENBREL [Suspect]
     Indication: PSORIASIS
     Dosage: 50 MG, QWK
     Route: 065
     Dates: start: 20130903, end: 20130916
  2. VITAMINS /90003601/ [Concomitant]
     Dosage: UNK
  3. CLOBETASOL [Concomitant]
     Dosage: UNK
  4. VECTICAL [Concomitant]
     Dosage: UNK

REACTIONS (5)
  - Abasia [Unknown]
  - Oedema [Unknown]
  - Joint swelling [Unknown]
  - Local swelling [Unknown]
  - Pain [Unknown]
